FAERS Safety Report 9778768 (Version 1)
Quarter: 2013Q4

REPORT INFORMATION
  Report Type: Spontaneous
  Country: US (occurrence: US)
  Receive Date: 20131223
  Receipt Date: 20131223
  Transmission Date: 20140711
  Serious: No
  Sender: FDA-Public Use
  Company Number: US-GILEAD-2010-0029817

PATIENT
  Sex: Female
  Weight: 86.17 kg

DRUGS (2)
  1. ATRIPLA [Suspect]
     Indication: HIV INFECTION
     Route: 048
     Dates: start: 20050104
  2. PRAVASTATIN [Concomitant]

REACTIONS (4)
  - Dizziness [Unknown]
  - Abnormal dreams [Unknown]
  - Dizziness [Unknown]
  - Headache [Unknown]
